FAERS Safety Report 4483443-X (Version None)
Quarter: 2004Q4

REPORT INFORMATION
  Report Type: 
  Country: None (occurrence: None)
  Receive Date: 20041020
  Receipt Date: 20041001
  Transmission Date: 20050328
  Serious: Yes (Disabling, Other)
  Sender: FDA-Public Use
  Company Number: USA041079897

PATIENT
  Age: 89 Year
  Sex: Female
  Weight: 66 kg

DRUGS (3)
  1. HUMALOG [Suspect]
  2. HUMULIN N [Suspect]
  3. INSULIN [Suspect]
     Dates: start: 19670101

REACTIONS (9)
  - BODY HEIGHT DECREASED [None]
  - BONE DENSITY DECREASED [None]
  - HYPOAESTHESIA [None]
  - NERVE INJURY [None]
  - NEURALGIA [None]
  - RASH ERYTHEMATOUS [None]
  - TEMPORAL ARTERITIS [None]
  - THERAPY NON-RESPONDER [None]
  - UPPER LIMB FRACTURE [None]
